FAERS Safety Report 17826339 (Version 1)
Quarter: 2020Q2

REPORT INFORMATION
  Report Type: Spontaneous
  Country: CN (occurrence: CN)
  Receive Date: 20200526
  Receipt Date: 20200526
  Transmission Date: 20200714
  Serious: Yes (Other)
  Sender: FDA-Public Use
  Company Number: CN-PFIZER INC-2020205382

PATIENT
  Age: 51 Year
  Sex: Female

DRUGS (6)
  1. MOXIFLOXACIN. [Concomitant]
     Active Substance: MOXIFLOXACIN
     Indication: PYREXIA
  2. ACICLOVIR [Concomitant]
     Active Substance: ACYCLOVIR
     Indication: PYREXIA
  3. ACICLOVIR [Concomitant]
     Active Substance: ACYCLOVIR
     Indication: NEUTROPHIL COUNT DECREASED
     Dosage: 0.2 G, 3X/DAY
     Route: 048
     Dates: start: 20180219
  4. VORICONAZOLE. [Suspect]
     Active Substance: VORICONAZOLE
     Indication: NEUTROPHIL COUNT DECREASED
     Dosage: 1 G, 2X/DAY(3 TIMES WITH TOTAL DOSE OF 3.0 G WITHIN 24 HOURS)
     Route: 048
     Dates: start: 20180219, end: 20180220
  5. VORICONAZOLE. [Suspect]
     Active Substance: VORICONAZOLE
     Indication: PYREXIA
  6. MOXIFLOXACIN. [Concomitant]
     Active Substance: MOXIFLOXACIN
     Indication: NEUTROPHIL COUNT DECREASED
     Dosage: 0.4 G, 1X/DAY
     Route: 048
     Dates: start: 20180219, end: 20180220

REACTIONS (7)
  - Alanine aminotransferase increased [Recovered/Resolved]
  - Drug-induced liver injury [Recovered/Resolved]
  - Accidental overdose [Unknown]
  - Aspartate aminotransferase increased [Recovered/Resolved]
  - Product prescribing error [Unknown]
  - Gamma-glutamyltransferase increased [Not Recovered/Not Resolved]
  - Drug level increased [Recovered/Resolved]

NARRATIVE: CASE EVENT DATE: 20180219
